FAERS Safety Report 8839561 (Version 1)
Quarter: 2012Q4

REPORT INFORMATION
  Report Type: Spontaneous
  Country: US (occurrence: None)
  Receive Date: 20121012
  Receipt Date: 20121012
  Transmission Date: 20130627
  Serious: No
  Sender: FDA-Public Use
  Company Number: None

PATIENT
  Age: 90 Year
  Sex: Male
  Weight: 50.4 kg

DRUGS (1)
  1. GLIPIZIDE [Suspect]
     Indication: HYPOGLYCEMIA
     Route: 048
     Dates: start: 20111102, end: 20120821

REACTIONS (2)
  - Hypoglycaemia [None]
  - Inappropriate schedule of drug administration [None]
